FAERS Safety Report 4340265-8 (Version None)
Quarter: 2004Q2

REPORT INFORMATION
  Report Type: 
  Country: None (occurrence: None)
  Receive Date: 20040412
  Receipt Date: 20040325
  Transmission Date: 20050107
  Serious: Yes (Hospitalization)
  Sender: FDA-Public Use
  Company Number: 701530

PATIENT
  Age: 44 Year
  Sex: Male
  Weight: 88.3 kg

DRUGS (5)
  1. ALEFACEPT [Suspect]
     Indication: PSORIASIS
     Dosage: 15 MG QW IM
     Route: 030
     Dates: start: 20030527, end: 20030812
  2. ALEFACEPT [Suspect]
     Indication: PSORIASIS
     Dosage: 15 MG QW IM
     Route: 030
     Dates: start: 20031118, end: 20040113
  3. SYNTHROID [Concomitant]
  4. FERROUS SULFATE TAB [Concomitant]
  5. TRAZODONE HCL [Concomitant]

REACTIONS (19)
  - ARTHRALGIA [None]
  - ASTHENIA [None]
  - C-REACTIVE PROTEIN INCREASED [None]
  - CIRCULATORY COLLAPSE [None]
  - CONFUSIONAL STATE [None]
  - DISORIENTATION [None]
  - DIZZINESS [None]
  - DYSARTHRIA [None]
  - ECHOCARDIOGRAM ABNORMAL [None]
  - FAECAL INCONTINENCE [None]
  - HEAD INJURY [None]
  - LIMB INJURY [None]
  - LOSS OF CONSCIOUSNESS [None]
  - MYOCARDIAL INFARCTION [None]
  - NECK PAIN [None]
  - PAIN [None]
  - RED BLOOD CELL SEDIMENTATION RATE INCREASED [None]
  - SYNCOPE [None]
  - TRICUSPID VALVE INCOMPETENCE [None]
